FAERS Safety Report 10589014 (Version 2)
Quarter: 2014Q4

REPORT INFORMATION
  Report Type: Spontaneous
  Country: US (occurrence: US)
  Receive Date: 20141118
  Receipt Date: 20141202
  Transmission Date: 20150529
  Serious: Yes (Other)
  Sender: FDA-Public Use
  Company Number: US-009507513-1411USA004184

PATIENT
  Age: 14 Year
  Sex: Female

DRUGS (1)
  1. NEXPLANON [Suspect]
     Active Substance: ETONOGESTREL
     Indication: CONTRACEPTION
     Dosage: UNK
     Route: 059
     Dates: start: 201407

REACTIONS (4)
  - Medical device complication [Not Recovered/Not Resolved]
  - Menorrhagia [Unknown]
  - Headache [Unknown]
  - Surgery [Unknown]

NARRATIVE: CASE EVENT DATE: 2014
